FAERS Safety Report 4379813-0 (Version None)
Quarter: 2004Q2

REPORT INFORMATION
  Report Type: 
  Country: None (occurrence: None)
  Receive Date: 20040614
  Receipt Date: 20040531
  Transmission Date: 20050107
  Serious: No
  Sender: FDA-Public Use
  Company Number: 2004SE03086

PATIENT
  Sex: Male

DRUGS (1)
  1. CASODEX [Suspect]
     Dosage: 50 MG DAILY PO
     Route: 048

REACTIONS (1)
  - BONE MARROW DEPRESSION [None]
